FAERS Safety Report 17085037 (Version 1)
Quarter: 2019Q4

REPORT INFORMATION
  Report Type: Report from Study
  Country: None (occurrence: NL)
  Receive Date: 20191127
  Receipt Date: 20191127
  Transmission Date: 20200122
  Serious: Yes (Other)
  Sender: FDA-Public Use
  Company Number: NL-ABBVIE-19K-114-2840433-00

PATIENT
  Age: 64 Year
  Sex: Female
  Weight: 93.4 kg

DRUGS (3)
  1. DUODOPA [Suspect]
     Active Substance: CARBIDOPA\LEVODOPA
     Indication: PARKINSON^S DISEASE
     Route: 050
     Dates: start: 20140130
  2. LAXANS [Concomitant]
     Indication: PRODUCT USED FOR UNKNOWN INDICATION
  3. MOVICOLON [Concomitant]
     Active Substance: POLYETHYLENE GLYCOL 3350\POTASSIUM CHLORIDE\SODIUM BICARBONATE\SODIUM CHLORIDE
     Indication: PRODUCT USED FOR UNKNOWN INDICATION

REACTIONS (14)
  - Stoma site irritation [Not Recovered/Not Resolved]
  - Stoma site discharge [Not Recovered/Not Resolved]
  - Stoma site erythema [Not Recovered/Not Resolved]
  - General physical condition abnormal [Unknown]
  - Communication disorder [Not Recovered/Not Resolved]
  - Disturbance in attention [Unknown]
  - Dyschezia [Unknown]
  - On and off phenomenon [Not Recovered/Not Resolved]
  - Memory impairment [Unknown]
  - Poor quality sleep [Unknown]
  - Mobility decreased [Not Recovered/Not Resolved]
  - Multiple system atrophy [Not Recovered/Not Resolved]
  - Unresponsive to stimuli [Not Recovered/Not Resolved]
  - Device dislocation [Unknown]

NARRATIVE: CASE EVENT DATE: 201811
